FAERS Safety Report 7123554-3 (Version None)
Quarter: 2010Q4

REPORT INFORMATION
  Report Type: 
  Country: None (occurrence: None)
  Receive Date: 20101125
  Receipt Date: 20101123
  Transmission Date: 20110411
  Serious: Yes (Life-Threatening, Hospitalization, Other)
  Sender: FDA-Public Use
  Company Number: CH-PFIZER INC-2010097243

PATIENT
  Sex: Male
  Weight: 116 kg

DRUGS (13)
  1. CLINDAMYCIN HCL [Suspect]
     Indication: OSTEITIS
     Dosage: 600 MG, 3X/DAY
     Dates: start: 20100716, end: 20100725
  2. ASPIRIN [Concomitant]
     Dosage: 100 MG, 1X/DAY
     Route: 048
  3. PLAVIX [Concomitant]
     Dosage: 75 MG, 1X/DAY
     Route: 048
  4. COVERSUM COMBI [Concomitant]
     Dosage: UNK
     Route: 048
     Dates: end: 20100725
  5. NEBIVOLOL HCL [Concomitant]
     Dosage: UNK
     Route: 048
  6. PANTOPRAZOLE SODIUM [Concomitant]
     Dosage: 40 MG, 1X/DAY
     Route: 048
  7. TOREM [Concomitant]
     Dosage: UNK
     Route: 048
     Dates: end: 20100725
  8. ALLOPURINOL [Concomitant]
     Dosage: UNK
     Route: 048
     Dates: end: 20100725
  9. SORTIS [Concomitant]
     Dosage: 40 MG, 1X/DAY
     Route: 048
  10. FLOXAPEN [Concomitant]
     Dosage: UNK
     Route: 042
     Dates: start: 20100706, end: 20100719
  11. VOLTAREN [Concomitant]
     Dosage: 50 MG, 2X/DAY
     Route: 048
     Dates: start: 20100705, end: 20100715
  12. PARACETAMOL [Concomitant]
     Dosage: 1 G, 3X/DAY
     Route: 048
     Dates: start: 20100704, end: 20100716
  13. PARACETAMOL [Concomitant]
     Dosage: 1250 MG, 3X/DAY
     Route: 048
     Dates: start: 20100722

REACTIONS (6)
  - BLINDNESS TRANSIENT [None]
  - C-REACTIVE PROTEIN INCREASED [None]
  - CONFUSIONAL STATE [None]
  - EOSINOPHILIA [None]
  - RENAL IMPAIRMENT [None]
  - VISUAL FIELD DEFECT [None]
